FAERS Safety Report 11046796 (Version 1)
Quarter: 2015Q2

REPORT INFORMATION
  Report Type: Spontaneous
  Country: US (occurrence: US)
  Receive Date: 20150420
  Receipt Date: 20150420
  Transmission Date: 20150821
  Serious: No
  Sender: FDA-Public Use
  Company Number: US-009507513-1504USA017942

PATIENT
  Age: 79 Year
  Sex: Female

DRUGS (9)
  1. EMEND [Suspect]
     Active Substance: APREPITANT
     Indication: NAUSEA
  2. METOCLOPRAMIDE. [Concomitant]
     Active Substance: METOCLOPRAMIDE
  3. HALOPERIDOL. [Concomitant]
     Active Substance: HALOPERIDOL
  4. EMEND [Suspect]
     Active Substance: APREPITANT
     Indication: VOMITING
  5. ONDANSETRON [Concomitant]
     Active Substance: ONDANSETRON
  6. LOPERAMIDE HYDROCHLORIDE. [Concomitant]
     Active Substance: LOPERAMIDE HYDROCHLORIDE
  7. OLANZAPINE. [Concomitant]
     Active Substance: OLANZAPINE
  8. OCTREOTIDE [Concomitant]
     Active Substance: OCTREOTIDE
  9. PERIPHERAL OPIOID RECEPTOR ANTAGONIST (UNSPECIFIED) [Concomitant]
     Indication: PAIN

REACTIONS (1)
  - Drug ineffective [Unknown]
